FAERS Safety Report 9311883 (Version 1)
Quarter: 2013Q2

REPORT INFORMATION
  Report Type: Spontaneous
  Country: GB (occurrence: GB)
  Receive Date: 20130528
  Receipt Date: 20130528
  Transmission Date: 20140414
  Serious: Yes (Death)
  Sender: FDA-Public Use
  Company Number: GB-JNJFOC-20130509312

PATIENT
  Sex: 0

DRUGS (7)
  1. LEVOFLOXACIN [Suspect]
     Indication: MENINGITIS TUBERCULOUS
     Dosage: FOR THE FIRST 60 DAYS
     Route: 048
  2. ISONIAZID [Suspect]
     Indication: MENINGITIS TUBERCULOUS
     Dosage: 5 MG/KG OF BODY WEIGHT (MAXIMUM OF 300 MG), FOR 90 MONTHS
     Route: 048
  3. RIFAMPIN [Suspect]
     Indication: MENINGITIS TUBERCULOUS
     Dosage: MAXIMUM OF 600 MG, FOR 9 MONTHS
     Route: 048
  4. PYRAZINAMIDE [Suspect]
     Indication: MENINGITIS TUBERCULOUS
     Dosage: 30 MG/KG OF BODY WEIGHT (MAXIMUM OF 1 G/DAY), FOR THE FIRST 3 MONTHS
     Route: 048
  5. STREPTOMYCIN [Suspect]
     Indication: MENINGITIS TUBERCULOUS
     Dosage: (MAXIMUM OF 1 G/DAY), FOR THE FIRST 3 MONTHS
     Route: 030
  6. ETHAMBUTOL [Suspect]
     Indication: MENINGITIS TUBERCULOUS
     Dosage: MAXIMUM OF 1.2 G/DAY, FOR THE FIRST 3 MONTHS
     Route: 065
  7. DEXAMETHASONE [Suspect]
     Indication: MENINGITIS TUBERCULOUS
     Dosage: FOR THE FIRST 6 TO 8 WEEKS
     Route: 065

REACTIONS (1)
  - Death [Fatal]
